FAERS Safety Report 8500516-2 (Version None)
Quarter: 2012Q3

REPORT INFORMATION
  Report Type: 
  Country: None (occurrence: None)
  Receive Date: 20120710
  Receipt Date: 20120704
  Transmission Date: 20120928
  Serious: Yes (Hospitalization)
  Sender: FDA-Public Use
  Company Number: DE-BAYER-2012-044577

PATIENT
  Age: 41 Year
  Sex: Female
  Weight: 70 kg

DRUGS (2)
  1. VOLTAREN [Concomitant]
  2. BETASERON [Suspect]
     Dosage: UNK
     Route: 058

REACTIONS (2)
  - DYSPNOEA EXERTIONAL [None]
  - SARCOIDOSIS [None]
